FAERS Safety Report 4667358-X (Version None)
Quarter: 2005Q2

REPORT INFORMATION
  Report Type: 
  Country: None (occurrence: None)
  Receive Date: 20050428
  Receipt Date: 20050222
  Transmission Date: 20051028
  Serious: Yes (Death)
  Sender: FDA-Public Use
  Company Number: 05P-163-0290192-00

PATIENT
  Age: 77 Year
  Sex: Female

DRUGS (6)
  1. SYNTHROID [Suspect]
     Indication: HYPOTHYROIDISM
     Dosage: 100 MCG, 1 IN 1 D, PER ORAL
     Route: 048
     Dates: start: 20030901
  2. NITROGLYCERIN [Concomitant]
  3. SERTALINE HYDROCHLORIDE [Concomitant]
  4. ESOMEPRAZOLE [Concomitant]
  5. MESALAMINE [Concomitant]
  6. COUMADIN [Concomitant]

REACTIONS (1)
  - DEATH [None]
